FAERS Safety Report 6851883-7 (Version None)
Quarter: 2010Q3

REPORT INFORMATION
  Report Type: 
  Country: None (occurrence: None)
  Receive Date: 20100717
  Receipt Date: 20071030
  Transmission Date: 20110219
  Serious: No
  Sender: FDA-Public Use
  Company Number: US-PFIZER INC-2007092920

PATIENT
  Sex: Female
  Weight: 44.09 kg

DRUGS (6)
  1. CHANTIX [Suspect]
     Indication: SMOKING CESSATION THERAPY
     Route: 048
     Dates: start: 20071023
  2. ADVAIR DISKUS 100/50 [Concomitant]
  3. PREDNISOLONE [Concomitant]
  4. EFFEXOR [Concomitant]
  5. ALBUTEROL [Concomitant]
  6. XANAX [Concomitant]

REACTIONS (2)
  - ABDOMINAL DISCOMFORT [None]
  - HEADACHE [None]
